FAERS Safety Report 15434985 (Version 1)
Quarter: 2018Q3

REPORT INFORMATION
  Report Type: Spontaneous
  Country: US (occurrence: US)
  Receive Date: 20180924
  Receipt Date: 20180924
  Transmission Date: 20181010
  Serious: Yes (Other)
  Sender: FDA-Public Use
  Company Number: None

PATIENT
  Age: 64 Year
  Sex: Female

DRUGS (3)
  1. BUPROPION XL [Suspect]
     Active Substance: BUPROPION
     Indication: MAJOR DEPRESSION
     Route: 048
     Dates: start: 20170901, end: 20180705
  2. BUPROPION XL [Suspect]
     Active Substance: BUPROPION
     Indication: MAJOR DEPRESSION
     Route: 048
     Dates: start: 20170901, end: 20180705
  3. FLUOXETINE [Concomitant]
     Active Substance: FLUOXETINE HYDROCHLORIDE
     Dates: start: 20081117

REACTIONS (9)
  - Agitation [None]
  - Mood altered [None]
  - Depression [None]
  - Morbid thoughts [None]
  - Thinking abnormal [None]
  - Feeling of despair [None]
  - Disturbance in attention [None]
  - Product substitution issue [None]
  - Tearfulness [None]

NARRATIVE: CASE EVENT DATE: 20180110
